FAERS Safety Report 9973180 (Version 2)
Quarter: 2014Q1

REPORT INFORMATION
  Report Type: Report from Study
  Country: US (occurrence: US)
  Receive Date: 20140306
  Receipt Date: 20140306
  Transmission Date: 20141002
  Serious: No
  Sender: FDA-Public Use
  Company Number: US-ABBVIE-13P-163-1119597-00

PATIENT
  Age: 33 Year
  Sex: Female

DRUGS (21)
  1. HUMIRA [Suspect]
     Indication: CROHN^S DISEASE
     Dates: start: 20130708, end: 20130708
  2. HUMIRA [Suspect]
  3. PAXIL [Suspect]
     Indication: DEPRESSION
     Dates: end: 201308
  4. ENALAPRIL [Concomitant]
     Indication: HYPERTENSION
  5. GARLIC [Concomitant]
     Indication: CARDIAC DISORDER
  6. FISH OIL [Concomitant]
     Indication: CARDIAC DISORDER
  7. FISH OIL [Concomitant]
     Indication: BLOOD CHOLESTEROL INCREASED
  8. LIALDA [Concomitant]
     Indication: CROHN^S DISEASE
  9. POTASSIUM [Concomitant]
     Indication: CARDIAC DISORDER
  10. CALCIUM [Concomitant]
     Indication: CROHN^S DISEASE
  11. ASPIRIN [Concomitant]
     Indication: CARDIAC DISORDER
  12. MULTIVITAMIN [Concomitant]
     Indication: CROHN^S DISEASE
  13. IRON [Concomitant]
     Indication: ANAEMIA
  14. VITAMIN C [Concomitant]
     Indication: PRODUCT USED FOR UNKNOWN INDICATION
  15. PROTONIX [Concomitant]
     Indication: GASTROOESOPHAGEAL REFLUX DISEASE
  16. TUMS [Concomitant]
     Indication: GASTROOESOPHAGEAL REFLUX DISEASE
  17. GAS X [Concomitant]
     Indication: GASTROOESOPHAGEAL REFLUX DISEASE
  18. HYOSCYAMINE [Concomitant]
     Indication: ABDOMINAL PAIN
     Dosage: EVERY 3 HOURS
  19. PROMETHAZINE [Concomitant]
     Indication: NAUSEA
  20. BLACK STRAP MOLASSES [Concomitant]
     Indication: BLOOD IRON
  21. FLUOXETINE [Concomitant]
     Indication: DEPRESSION

REACTIONS (2)
  - Activities of daily living impaired [Recovered/Resolved]
  - Injection site pain [Not Recovered/Not Resolved]
